FAERS Safety Report 15514796 (Version 2)
Quarter: 2018Q4

REPORT INFORMATION
  Report Type: Spontaneous
  Country: US (occurrence: US)
  Receive Date: 20181016
  Receipt Date: 20181109
  Transmission Date: 20190205
  Serious: No
  Sender: FDA-Public Use
  Company Number: US-ASTRAZENECA-2018SF27266

PATIENT
  Sex: Male
  Weight: 86.2 kg

DRUGS (1)
  1. TAGRISSO [Suspect]
     Active Substance: OSIMERTINIB
     Indication: NON-SMALL CELL LUNG CANCER
     Route: 048
     Dates: end: 20181001

REACTIONS (4)
  - Blood creatinine increased [Not Recovered/Not Resolved]
  - Blood creatinine decreased [Unknown]
  - Dehydration [Unknown]
  - Thirst decreased [Unknown]
